FAERS Safety Report 17712517 (Version 4)
Quarter: 2020Q3

REPORT INFORMATION
  Report Type: Report from Study
  Country: CA (occurrence: CA)
  Receive Date: 20200427
  Receipt Date: 20200908
  Transmission Date: 20201102
  Serious: Yes (Other)
  Sender: FDA-Public Use
  Company Number: CA-JNJFOC-20200425502

PATIENT
  Age: 71 Year
  Sex: Female
  Weight: 74 kg

DRUGS (3)
  1. REMICADE [Suspect]
     Active Substance: INFLIXIMAB
     Indication: COLITIS ULCERATIVE
     Route: 042
     Dates: start: 20191211, end: 20200516
  2. REMICADE [Suspect]
     Active Substance: INFLIXIMAB
     Route: 042
     Dates: start: 20191211, end: 20200516
  3. REMICADE [Suspect]
     Active Substance: INFLIXIMAB
     Dosage: DOSE OPTIMIZATION
     Route: 042

REACTIONS (8)
  - Colonic abscess [Unknown]
  - Palpitations [Recovered/Resolved]
  - Product use issue [Unknown]
  - Off label use [Unknown]
  - Dizziness [Recovered/Resolved]
  - Infusion related reaction [Recovered/Resolved]
  - Therapeutic product effect incomplete [Unknown]
  - Frequent bowel movements [Unknown]

NARRATIVE: CASE EVENT DATE: 20191211
